FAERS Safety Report 12987209 (Version 1)
Quarter: 2016Q4

REPORT INFORMATION
  Report Type: Report from Study
  Country: GB (occurrence: GB)
  Receive Date: 20161130
  Receipt Date: 20161130
  Transmission Date: 20170207
  Serious: Yes (Other)
  Sender: FDA-Public Use
  Company Number: GB-VIIV HEALTHCARE LIMITED-GB2016GSK176652

PATIENT
  Age: 49 Year
  Sex: Male

DRUGS (4)
  1. NORVIR [Interacting]
     Active Substance: RITONAVIR
     Indication: HIV INFECTION
  2. LAMIVUDINE. [Suspect]
     Active Substance: LAMIVUDINE
     Indication: HIV INFECTION
  3. ZIAGEN [Interacting]
     Active Substance: ABACAVIR SULFATE
     Indication: HIV INFECTION
  4. REYATAZ [Interacting]
     Active Substance: ATAZANAVIR SULFATE
     Indication: HIV INFECTION

REACTIONS (3)
  - Dyslipidaemia [Unknown]
  - Myocardial infarction [Unknown]
  - Drug interaction [Unknown]
